FAERS Safety Report 9636663 (Version 2)
Quarter: 2014Q1

REPORT INFORMATION
  Report Type: Spontaneous
  Country: GB (occurrence: GB)
  Receive Date: 20131021
  Receipt Date: 20140120
  Transmission Date: 20141002
  Serious: Yes (Other)
  Sender: FDA-Public Use
  Company Number: GB-ROCHE-1291961

PATIENT
  Sex: Female

DRUGS (6)
  1. XOLAIR [Suspect]
     Indication: PRODUCT USED FOR UNKNOWN INDICATION
     Route: 065
  2. XOLAIR [Suspect]
     Route: 065
  3. XOLAIR [Suspect]
     Route: 065
  4. XOLAIR [Suspect]
     Route: 065
  5. XOLAIR [Suspect]
     Route: 065
  6. XOLAIR [Suspect]
     Route: 065

REACTIONS (2)
  - Heart rate abnormal [Unknown]
  - Maternal exposure during pregnancy [Unknown]
